FAERS Safety Report 6567509-6 (Version None)
Quarter: 2010Q1

REPORT INFORMATION
  Report Type: 
  Country: None (occurrence: None)
  Receive Date: 20100202
  Receipt Date: 20100122
  Transmission Date: 20100710
  Serious: Yes (Hospitalization)
  Sender: FDA-Public Use
  Company Number: US-JNJFOC-20100109703

PATIENT
  Age: 74 Year
  Sex: Female
  Weight: 61.24 kg

DRUGS (7)
  1. EXTRA STRENGTH TYLENOL [Suspect]
     Route: 048
  2. EXTRA STRENGTH TYLENOL [Suspect]
     Indication: PAIN
     Dosage: 1-2 TIMES DAILY FOR ^AWHILE^
     Route: 048
  3. CLONIDINE [Concomitant]
     Indication: HYPERTENSION
  4. COUMADIN [Concomitant]
     Indication: ANTICOAGULANT THERAPY
  5. COUMADIN [Concomitant]
  6. METHIMAZOLE [Concomitant]
     Indication: THYROID DISORDER
     Dosage: FOR 2.5 YEARS
  7. ATIVAN [Concomitant]
     Indication: HYPERTENSION

REACTIONS (4)
  - ABDOMINAL PAIN UPPER [None]
  - ARRHYTHMIA [None]
  - HYPERHIDROSIS [None]
  - PRODUCT QUALITY ISSUE [None]
